FAERS Safety Report 24585568 (Version 7)
Quarter: 2025Q1

REPORT INFORMATION
  Report Type: Report from Study
  Country: US (occurrence: US)
  Receive Date: 20241106
  Receipt Date: 20250324
  Transmission Date: 20250409
  Serious: No
  Sender: SUNOVION
  Company Number: US-SUMITOMO PHARMA SWITZERLAND GMBH-2024SPA004581

PATIENT

DRUGS (13)
  1. ORGOVYX [Suspect]
     Active Substance: RELUGOLIX
     Indication: Prostate cancer
     Dosage: 360 MG, SINGLE
     Route: 048
     Dates: start: 20241023, end: 20241023
  2. ORGOVYX [Suspect]
     Active Substance: RELUGOLIX
     Dosage: 120 MG, QD
     Route: 048
     Dates: start: 20241024
  3. ATORVASTATIN [Concomitant]
     Active Substance: ATORVASTATIN
     Route: 065
  4. COLACE [Concomitant]
     Active Substance: DOCUSATE SODIUM
     Route: 065
  5. LEVOTHYROXINE [Concomitant]
     Active Substance: LEVOTHYROXINE
     Route: 065
  6. VITAMINS [Concomitant]
     Active Substance: VITAMINS
     Route: 065
  7. TELMISARTAN [Concomitant]
     Active Substance: TELMISARTAN
     Route: 065
  8. HYDROCHLOROTHIAZIDE [Concomitant]
     Active Substance: HYDROCHLOROTHIAZIDE
     Route: 065
  9. MAALOX ANTACID [Concomitant]
     Active Substance: ALUMINUM HYDROXIDE\DIMETHICONE\MAGNESIUM HYDROXIDE
     Route: 065
  10. FOSFOMYCIN [Concomitant]
     Active Substance: FOSFOMYCIN
     Route: 065
  11. CHOLESTYRAMINE [Concomitant]
     Active Substance: CHOLESTYRAMINE
     Route: 065
  12. VITAMINS [Concomitant]
     Active Substance: VITAMINS
     Route: 065
  13. SALINE NASAL [Concomitant]
     Active Substance: SODIUM CHLORIDE
     Route: 065

REACTIONS (14)
  - Pain [Unknown]
  - Pruritus [Unknown]
  - Dry skin [Unknown]
  - Micturition urgency [Unknown]
  - Pollakiuria [Unknown]
  - Pain in jaw [Unknown]
  - Feeling abnormal [Unknown]
  - Headache [Unknown]
  - Rash [Unknown]
  - Asthenia [Recovered/Resolved]
  - Diarrhoea [Unknown]
  - Arthralgia [Unknown]
  - Fatigue [Unknown]
  - Myalgia [Unknown]

NARRATIVE: CASE EVENT DATE: 20241023
